FAERS Safety Report 10540766 (Version 1)
Quarter: 2014Q4

REPORT INFORMATION
  Report Type: Spontaneous
  Country: US (occurrence: None)
  Receive Date: 20141023
  Receipt Date: 20141023
  Transmission Date: 20150529
  Serious: Yes (Hospitalization)
  Sender: FDA-Public Use
  Company Number: None

PATIENT
  Age: 62 Year
  Sex: Female
  Weight: 42.4 kg

DRUGS (3)
  1. CARBOPLATIN. [Suspect]
     Active Substance: CARBOPLATIN
  2. TAXOL [Suspect]
     Active Substance: PACLITAXEL
  3. BEVACIZUMAB [Suspect]
     Active Substance: BEVACIZUMAB

REACTIONS (30)
  - Hypophagia [None]
  - Mass [None]
  - Condition aggravated [None]
  - Cardio-respiratory arrest [None]
  - Lethargy [None]
  - Asthenia [None]
  - Cardiac failure congestive [None]
  - Inadequate analgesia [None]
  - Soft tissue mass [None]
  - Generalised oedema [None]
  - Metastases to heart [None]
  - Mobility decreased [None]
  - Platelet count decreased [None]
  - Blood albumin decreased [None]
  - Muscular weakness [None]
  - Pericardial effusion [None]
  - Pleural effusion [None]
  - Computerised tomogram thorax abnormal [None]
  - Weight bearing difficulty [None]
  - Somnolence [None]
  - Bone lesion [None]
  - Atelectasis [None]
  - Decreased appetite [None]
  - Hypovolaemia [None]
  - Radiation pneumonitis [None]
  - Radial nerve palsy [None]
  - Neoplasm [None]
  - Lymphoedema [None]
  - Pain [None]
  - Metastases to central nervous system [None]

NARRATIVE: CASE EVENT DATE: 20141006
